FAERS Safety Report 21645600 (Version 1)
Quarter: 2022Q4

REPORT INFORMATION
  Report Type: Report from Study
  Country: US (occurrence: US)
  Receive Date: 20221126
  Receipt Date: 20221126
  Transmission Date: 20230113
  Serious: No
  Sender: FDA-Public Use
  Company Number: US-ABBVIE-22K-163-4515865-00

PATIENT
  Sex: Male

DRUGS (1)
  1. IMBRUVICA [Suspect]
     Active Substance: IBRUTINIB
     Indication: Chronic lymphocytic leukaemia
     Route: 048
     Dates: start: 202103

REACTIONS (6)
  - Dizziness [Unknown]
  - Hypersomnia [Unknown]
  - Musculoskeletal disorder [Unknown]
  - Infected bite [Unknown]
  - Platelet count abnormal [Unknown]
  - Constipation [Unknown]
